FAERS Safety Report 15006783 (Version 2)
Quarter: 2018Q2

REPORT INFORMATION
  Report Type: Report from Study
  Country: US (occurrence: US)
  Receive Date: 20180613
  Receipt Date: 20180614
  Transmission Date: 20180711
  Serious: No
  Sender: FDA-Public Use
  Company Number: US-US WORLDMEDS, LLC-USW201802-000194

PATIENT
  Age: 81 Year
  Sex: Male
  Weight: 83 kg

DRUGS (4)
  1. LEVOTHYROXINE. [Concomitant]
     Active Substance: LEVOTHYROXINE
  2. APOKYN [Suspect]
     Active Substance: APOMORPHINE HYDROCHLORIDE
     Indication: PARKINSON^S DISEASE
     Route: 058
     Dates: start: 20180205
  3. CARBIDOPA/LEVODOPA [Concomitant]
     Active Substance: CARBIDOPA\LEVODOPA
  4. PRAMIPEXOLE. [Concomitant]
     Active Substance: PRAMIPEXOLE

REACTIONS (4)
  - Dizziness [Recovered/Resolved]
  - Tremor [Recovered/Resolved]
  - Pallor [Recovered/Resolved]
  - Blood pressure decreased [Recovered/Resolved]

NARRATIVE: CASE EVENT DATE: 20180205
